FAERS Safety Report 22068189 (Version 1)
Quarter: 2023Q1

REPORT INFORMATION
  Report Type: Spontaneous
  Country: US (occurrence: US)
  Receive Date: 20230307
  Receipt Date: 20230307
  Transmission Date: 20230418
  Serious: Yes (Other)
  Sender: FDA-Public Use
  Company Number: US-PFIZER INC-202300067303

PATIENT
  Age: 83 Year
  Sex: Female
  Weight: 72.57 kg

DRUGS (3)
  1. ESTRING [Suspect]
     Active Substance: ESTRADIOL
     Indication: Vulvovaginal dryness
     Dosage: 2 MG, EVERY 3 MONTHS
     Route: 067
     Dates: start: 1987
  2. ESTRING [Suspect]
     Active Substance: ESTRADIOL
     Indication: Micturition disorder
  3. SIMVASTATIN [Concomitant]
     Active Substance: SIMVASTATIN
     Indication: Low density lipoprotein abnormal
     Dosage: 80 MG

REACTIONS (10)
  - Vulval cancer [Unknown]
  - Breast mass [Unknown]
  - Pain in extremity [Unknown]
  - Back disorder [Unknown]
  - Sciatica [Unknown]
  - Stress [Unknown]
  - Irritability [Recovered/Resolved]
  - Anxiety [Unknown]
  - Off label use [Unknown]
  - Drug effective for unapproved indication [Unknown]
